FAERS Safety Report 4348571-8 (Version None)
Quarter: 2004Q2

REPORT INFORMATION
  Report Type: 
  Country: None (occurrence: None)
  Receive Date: 20040422
  Receipt Date: 20040405
  Transmission Date: 20050107
  Serious: Yes (Life-Threatening, Hospitalization, Disabling, Other)
  Sender: FDA-Public Use
  Company Number: CA_040406832

PATIENT
  Age: 61 Year
  Sex: Female

DRUGS (3)
  1. PERMAX [Suspect]
     Indication: PARKINSON'S DISEASE
     Dosage: 4.5 MG DAY
     Dates: start: 19990601, end: 20031201
  2. SINEMET [Concomitant]
  3. REQUIP [Concomitant]

REACTIONS (6)
  - AORTIC VALVE INCOMPETENCE [None]
  - CARDIAC FAILURE [None]
  - CARDIAC VALVE DISEASE [None]
  - MITRAL VALVE INCOMPETENCE [None]
  - RENAL FAILURE [None]
  - TRICUSPID VALVE INCOMPETENCE [None]
